FAERS Safety Report 17830824 (Version 1)
Quarter: 2020Q2

REPORT INFORMATION
  Report Type: Spontaneous
  Country: US (occurrence: US)
  Receive Date: 20200527
  Receipt Date: 20200527
  Transmission Date: 20200714
  Serious: Yes (Hospitalization)
  Sender: FDA-Public Use
  Company Number: US-PFIZER INC-2020207532

PATIENT
  Age: 60 Year
  Sex: Female
  Weight: 40.82 kg

DRUGS (2)
  1. AROMASIN [Suspect]
     Active Substance: EXEMESTANE
     Indication: BREAST CANCER FEMALE
     Dosage: 25 MG, DAILY
     Route: 048
  2. PREDNISONE. [Suspect]
     Active Substance: PREDNISONE
     Dosage: UNK, (SHE TOOK 2 OF THE PREDNISONE)

REACTIONS (6)
  - Product selection error [Unknown]
  - Mental disorder [Unknown]
  - Amnesia [Unknown]
  - Product appearance confusion [Unknown]
  - Weight decreased [Unknown]
  - Wrong product administered [Unknown]
